FAERS Safety Report 8297432-0 (Version None)
Quarter: 2012Q2

REPORT INFORMATION
  Report Type: 
  Country: None (occurrence: None)
  Receive Date: 20120417
  Receipt Date: 20120407
  Transmission Date: 20120825
  Serious: Yes (Hospitalization)
  Sender: FDA-Public Use
  Company Number: UTC-017485

PATIENT
  Age: 55 Year
  Sex: Female
  Weight: 63.6 kg

DRUGS (4)
  1. REVATIO [Concomitant]
  2. LETAIRIS [Concomitant]
  3. DIURETICS (DIURETICS) [Concomitant]
  4. REMODULIN [Suspect]
     Indication: PULMONARY ARTERIAL HYPERTENSION
     Dosage: 25.2 UG/KG (0.0175 UG/KG, 1 IN 1 MIN),SUBCUTANEOUS
     Route: 058
     Dates: start: 20110906

REACTIONS (1)
  - INJECTION SITE INFECTION [None]
